FAERS Safety Report 7823891-0 (Version None)
Quarter: 2011Q4

REPORT INFORMATION
  Report Type: 
  Country: None (occurrence: None)
  Receive Date: 20111019
  Receipt Date: 20111006
  Transmission Date: 20120403
  Serious: Yes (Hospitalization, Other)
  Sender: FDA-Public Use
  Company Number: KR-PERRIGO-11KR008571

PATIENT
  Age: 51 Year
  Sex: Female

DRUGS (4)
  1. METHYLPREDNISOLONE [Suspect]
     Indication: IMMUNOSUPPRESSION
     Dosage: 750 MG
     Route: 065
     Dates: start: 20091101, end: 20091101
  2. DIURETICS [Concomitant]
     Indication: OLIGURIA
     Dosage: UNK
     Route: 065
     Dates: start: 20091101, end: 20091101
  3. CYCLOPHOSPHAMIDE [Concomitant]
     Indication: IMMUNOSUPPRESSION
     Dosage: 500 MG ON THE 6TH AND 36TH DAY OF ADMISSION
     Route: 065
     Dates: start: 20091101, end: 20091101
  4. PREDNISOLONE SODIUM PHOSPHATE [Suspect]
     Indication: IMMUNOSUPPRESSION
     Dosage: 60 MG
     Route: 065
     Dates: start: 20091101

REACTIONS (2)
  - MYOCLONIC EPILEPSY [None]
  - HYPERGLYCAEMIC HYPEROSMOLAR NONKETOTIC SYNDROME [None]
